FAERS Safety Report 7297780-7 (Version None)
Quarter: 2011Q1

REPORT INFORMATION
  Report Type: 
  Country: None (occurrence: None)
  Receive Date: 20110217
  Receipt Date: 20110211
  Transmission Date: 20110831
  Serious: Yes (Other)
  Sender: FDA-Public Use
  Company Number: US-SOLVAY-00211001121

PATIENT
  Age: 959 Month
  Sex: Male
  Weight: 70.455 kg

DRUGS (3)
  1. CREON [Suspect]
     Indication: PANCREATITIS CHRONIC
     Dosage: DAILY DOSE:  UNKNOWN, AS USED: 24000
     Route: 065
     Dates: start: 20100901, end: 20100901
  2. UNKNOWN BLOOD PRESSURE MEDICATION [Concomitant]
     Indication: HYPERTENSION
     Dosage: DAILY DOSE:  UNKNOWN
     Route: 065
  3. UNKNOWN INSULIN [Concomitant]
     Indication: DIABETES MELLITUS
     Dosage: DAILY DOSE:  UNKNOWN
     Route: 065

REACTIONS (3)
  - RASH [None]
  - PURPURA [None]
  - PETECHIAE [None]
